FAERS Safety Report 23677980 (Version 1)
Quarter: 2024Q1

REPORT INFORMATION
  Report Type: Report from Study
  Country: US (occurrence: US)
  Receive Date: 20240327
  Receipt Date: 20240327
  Transmission Date: 20240410
  Serious: Yes (Other)
  Sender: FDA-Public Use
  Company Number: US-drreddys-CLI/USA/23/0183028

PATIENT
  Age: 17 Year
  Sex: Female

DRUGS (4)
  1. ACCUTANE [Suspect]
     Active Substance: ISOTRETINOIN
     Indication: Product used for unknown indication
     Dosage: RMA ISSUE DATE: 03 FEBRUARY 2023 08:41:47 AM
     Route: 065
     Dates: end: 20231030
  2. ACCUTANE [Suspect]
     Active Substance: ISOTRETINOIN
     Dosage: RMA ISSUE DATE: 13 MARCH 2023 09:08:06 AM
  3. ACCUTANE [Suspect]
     Active Substance: ISOTRETINOIN
     Dosage: RMA ISSUE DATE: 14 APRIL 2023 08:54:59 AM, 21 JUNE 2023 03:28:46 PM
  4. ACCUTANE [Suspect]
     Active Substance: ISOTRETINOIN
     Dosage: RMA ISSUE DATE: 17 MAY 2023 04:15:10 PM, 27 JULY 2023 09:54:38 AM, 29 AUGUST 08:53:08 AM, 29 SEPTEMB
     Dates: start: 20230203, end: 20231030

REACTIONS (1)
  - Exposure during pregnancy [Unknown]

NARRATIVE: CASE EVENT DATE: 20231101
